FAERS Safety Report 9952846 (Version 1)
Quarter: 2014Q1

REPORT INFORMATION
  Report Type: Other
  Country: US (occurrence: US)
  Receive Date: 20140304
  Receipt Date: 20140304
  Transmission Date: 20141002
  Serious: Yes (Death)
  Sender: FDA-Public Use
  Company Number: US-FRI-1000054906

PATIENT
  Age: 87 Year
  Sex: Male

DRUGS (5)
  1. LEVOTHROID [Suspect]
  2. AMLODIPINE [Suspect]
  3. DONEPEZIL [Suspect]
  4. ACETAMINOPHEN/HYDROCODONE [Suspect]
  5. LORAZEPAM [Suspect]

REACTIONS (1)
  - Completed suicide [Fatal]
